FAERS Safety Report 11850322 (Version 1)
Quarter: 2015Q4

REPORT INFORMATION
  Report Type: Spontaneous
  Country: US (occurrence: US)
  Receive Date: 20151218
  Receipt Date: 20151218
  Transmission Date: 20160305
  Serious: No
  Sender: FDA-Public Use
  Company Number: US-JNJFOC-20151112352

PATIENT
  Age: 4 Year
  Sex: Female
  Weight: 22.23 kg

DRUGS (1)
  1. CHILDRENS TYLENOL [Suspect]
     Active Substance: ACETAMINOPHEN
     Indication: ACCIDENTAL EXPOSURE TO PRODUCT
     Dosage: 1X (ONCE)
     Route: 048
     Dates: start: 20151110, end: 20151110

REACTIONS (3)
  - Accidental exposure to product [Unknown]
  - Hypersomnia [Not Recovered/Not Resolved]
  - Product packaging issue [Unknown]

NARRATIVE: CASE EVENT DATE: 20151110
